FAERS Safety Report 5728179-X (Version None)
Quarter: 2008Q2

REPORT INFORMATION
  Report Type: 
  Country: None (occurrence: None)
  Receive Date: 20080430
  Receipt Date: 20080421
  Transmission Date: 20081010
  Serious: Yes (Hospitalization)
  Sender: FDA-Public Use
  Company Number: 2008-01128

PATIENT
  Age: 45 Year
  Sex: Male
  Weight: 160.6 kg

DRUGS (22)
  1. VELCADE [Suspect]
     Indication: MULTIPLE MYELOMA
     Dosage: 1 MG/M2
     Dates: start: 20051119, end: 20080304
  2. DEXAMETHASONE TAB [Suspect]
     Indication: MULTIPLE MYELOMA
     Dosage: 40 MG,
     Dates: start: 20051124
  3. SYNTHROID [Concomitant]
  4. ACYCLOVIR [Concomitant]
  5. THALIDOMIDE [Suspect]
     Indication: MULTIPLE MYELOMA
     Dosage: 200 MG; 50 MG
     Dates: end: 20080305
  6. THALIDOMIDE [Suspect]
     Indication: MULTIPLE MYELOMA
     Dosage: 200 MG; 50 MG
     Dates: start: 20051124
  7. CISPLATIN [Suspect]
     Indication: MULTIPLE MYELOMA
     Dosage: 10 MG/M2; 7.5 MG/M2
     Dates: end: 20061104
  8. CISPLATIN [Suspect]
     Indication: MULTIPLE MYELOMA
     Dosage: 10 MG/M2; 7.5 MG/M2
     Dates: start: 20051124
  9. DOXORUBICIN HCL [Suspect]
     Indication: MULTIPLE MYELOMA
     Dosage: 10 MG/M2; 7.5 MG/M2
     Dates: end: 20061104
  10. DOXORUBICIN HCL [Suspect]
     Indication: MULTIPLE MYELOMA
     Dosage: 10 MG/M2; 7.5 MG/M2
     Dates: start: 20051124
  11. CYCLOPHOSPHAMIDE [Suspect]
     Indication: MULTIPLE MYELOMA
     Dosage: 400 MG/M2; 300 MG/M2
     Dates: end: 20061104
  12. CYCLOPHOSPHAMIDE [Suspect]
     Indication: MULTIPLE MYELOMA
     Dosage: 400 MG/M2; 300 MG/M2
     Dates: start: 20051124
  13. ETOPOSIDE [Suspect]
     Indication: MULTIPLE MYELOMA
     Dosage: 40 MG/M2; 30 MG/M2
     Dates: end: 20061104
  14. ETOPOSIDE [Suspect]
     Indication: MULTIPLE MYELOMA
     Dosage: 40 MG/M2; 30 MG/M2
     Dates: start: 20051124
  15. MELPHALAN (MELPHALAN) VIAL [Suspect]
     Indication: MULTIPLE MYELOMA
     Dosage: 200 MG/M2
     Dates: start: 20060204, end: 20060430
  16. FOLIC ACID [Concomitant]
  17. PROCRIT [Concomitant]
  18. PROTONIX [Concomitant]
  19. BACTRIM DS [Concomitant]
  20. HYDROXYZINE HYDROCHLORIDE (HYDOXYZINE HYDROCHLORIDE) [Concomitant]
  21. LYRICA [Concomitant]
  22. LASIX [Concomitant]

REACTIONS (4)
  - BACTERIAL INFECTION [None]
  - BRONCHIAL HYPERREACTIVITY [None]
  - PNEUMONIA [None]
  - VIRAL INFECTION [None]
